FAERS Safety Report 8170254-7 (Version None)
Quarter: 2012Q1

REPORT INFORMATION
  Report Type: 
  Country: None (occurrence: None)
  Receive Date: 20120228
  Receipt Date: 20120223
  Transmission Date: 20120608
  Serious: Yes (Hospitalization, Other)
  Sender: FDA-Public Use
  Company Number: PHHY2011JP35509

PATIENT
  Age: 63 Year
  Sex: Female

DRUGS (5)
  1. TRANSAMIN [Suspect]
     Indication: OROPHARYNGEAL PAIN
     Dosage: UNK
     Dates: start: 20100101
  2. ASVERIN [Suspect]
     Indication: OROPHARYNGEAL PAIN
     Dosage: UNK
     Route: 048
     Dates: start: 20100101
  3. TEGRETOL [Suspect]
     Indication: TRIGEMINAL NEURALGIA
     Dosage: UNK
     Route: 048
     Dates: start: 20091201
  4. MARZULENE [Suspect]
     Indication: PYREXIA
     Dosage: UNK
     Dates: start: 20100101
  5. GARENOXACIN MESYLATE [Suspect]
     Indication: OROPHARYNGEAL PAIN
     Dosage: UNK
     Route: 048
     Dates: start: 20100101

REACTIONS (15)
  - DRUG RASH WITH EOSINOPHILIA AND SYSTEMIC SYMPTOMS [None]
  - PYREXIA [None]
  - WEIGHT INCREASED [None]
  - LYMPHADENOPATHY [None]
  - RASH ERYTHEMATOUS [None]
  - LEUKOCYTOSIS [None]
  - RASH MACULO-PAPULAR [None]
  - MALAISE [None]
  - HEPATIC FUNCTION ABNORMAL [None]
  - LYMPHOCYTE STIMULATION TEST POSITIVE [None]
  - CYTOMEGALOVIRUS TEST POSITIVE [None]
  - HUMAN HERPES VIRUS 6 SEROLOGY POSITIVE [None]
  - THYROIDITIS [None]
  - DERMATITIS EXFOLIATIVE [None]
  - EOSINOPHILIA [None]
